FAERS Safety Report 17044292 (Version 3)
Quarter: 2019Q4

REPORT INFORMATION
  Report Type: Spontaneous
  Country: AT (occurrence: AT)
  Receive Date: 20191118
  Receipt Date: 20191129
  Transmission Date: 20200122
  Serious: Yes (Other)
  Sender: FDA-Public Use
  Company Number: AT-ASTRAZENECA-2019SF37608

PATIENT
  Age: 55 Year
  Sex: Female

DRUGS (2)
  1. SYMBICORT [Suspect]
     Active Substance: BUDESONIDE\FORMOTEROL FUMARATE DIHYDRATE
     Indication: ASTHMA
     Dosage: 160/4.5 PACK, UNKNOWN UNKNOWN
     Route: 055
     Dates: start: 20190925
  2. SYMBICORT [Suspect]
     Active Substance: BUDESONIDE\FORMOTEROL FUMARATE DIHYDRATE
     Indication: ASTHMA
     Dosage: 200/6, UNKNOWN UNKNOWN
     Route: 055
     Dates: start: 20190925

REACTIONS (5)
  - Heart rate increased [Unknown]
  - Dizziness [Unknown]
  - Suspected product quality issue [Unknown]
  - Feeling abnormal [Unknown]
  - Arrhythmia [Unknown]

NARRATIVE: CASE EVENT DATE: 20190925
